FAERS Safety Report 11516583 (Version 1)
Quarter: 2015Q3

REPORT INFORMATION
  Report Type: Spontaneous
  Country: CA (occurrence: CA)
  Receive Date: 20150917
  Receipt Date: 20150917
  Transmission Date: 20151125
  Serious: Yes (Hospitalization, Other)
  Sender: FDA-Public Use
  Company Number: CA-TEVA-593397ACC

PATIENT
  Age: 88 Year
  Sex: Female

DRUGS (1)
  1. ACYCLOVIR. [Suspect]
     Active Substance: ACYCLOVIR
     Indication: HERPES SIMPLEX
     Dosage: 2400 MILLIGRAM DAILY;
     Route: 048

REACTIONS (2)
  - Erythema [Recovered/Resolved]
  - Petechiae [Recovered/Resolved]
